FAERS Safety Report 9910805 (Version 1)
Quarter: 2014Q1

REPORT INFORMATION
  Report Type: Spontaneous
  Country: FR (occurrence: FR)
  Receive Date: 20140219
  Receipt Date: 20140219
  Transmission Date: 20141002
  Serious: Yes (Other)
  Sender: FDA-Public Use
  Company Number: FR-MYLANLABS-2014S1002976

PATIENT
  Age: 37 Year
  Sex: Female

DRUGS (8)
  1. PREDNISONE [Suspect]
     Dosage: 10 MG/DAY
     Route: 065
  2. COTRIMOXAZOLE [Suspect]
     Indication: NOCARDIOSIS
     Dosage: 160/800MG THREE TIMES A DAY
     Route: 065
  3. MINOCYCLINE [Suspect]
     Indication: NOCARDIOSIS
     Route: 048
  4. MYCOPHENOLATE MOFETIL [Concomitant]
     Dosage: 500 MG/DAY
     Route: 065
  5. CICLOSPORIN [Concomitant]
     Route: 065
  6. CEFOTAXIME [Concomitant]
     Indication: NOCARDIOSIS
     Dosage: 300 MG/KG/DAY
     Route: 065
  7. CEFTRIAXONE [Concomitant]
     Indication: PNEUMONIA BACTERIAL
     Route: 065
     Dates: start: 200906
  8. CIPROFLOXACIN [Concomitant]
     Indication: NOCARDIOSIS
     Route: 048

REACTIONS (7)
  - Pneumonia bacterial [Recovering/Resolving]
  - Brain abscess [Recovering/Resolving]
  - Nocardiosis [Recovering/Resolving]
  - Neutropenia [Unknown]
  - Nausea [Unknown]
  - Diarrhoea [Unknown]
  - Vomiting [Unknown]
